FAERS Safety Report 19418986 (Version 1)
Quarter: 2021Q2

REPORT INFORMATION
  Report Type: Spontaneous
  Country: US (occurrence: US)
  Receive Date: 20210615
  Receipt Date: 20210615
  Transmission Date: 20210717
  Serious: No
  Sender: FDA-Public Use
  Company Number: US-PFIZER INC-2021315772

PATIENT
  Age: 83 Year
  Sex: Male

DRUGS (2)
  1. SULFASALAZINE. [Suspect]
     Active Substance: SULFASALAZINE
     Indication: COLITIS
     Dosage: 500 MG
  2. SULFASALAZINE. [Suspect]
     Active Substance: SULFASALAZINE
     Indication: IRRITABLE BOWEL SYNDROME

REACTIONS (4)
  - Functional gastrointestinal disorder [Unknown]
  - Dyspepsia [Unknown]
  - Off label use [Unknown]
  - Abdominal discomfort [Unknown]
